FAERS Safety Report 6040546-6 (Version None)
Quarter: 2009Q1

REPORT INFORMATION
  Report Type: 
  Country: None (occurrence: None)
  Receive Date: 20090116
  Receipt Date: 20080402
  Transmission Date: 20090719
  Serious: No
  Sender: FDA-Public Use
  Company Number: US-BRISTOL-MYERS SQUIBB COMPANY-14135958

PATIENT
  Age: 37 Year
  Sex: Female

DRUGS (6)
  1. ABILIFY [Suspect]
     Dates: end: 20080320
  2. EFFEXOR [Concomitant]
  3. SEROQUEL [Concomitant]
  4. AVINZA [Concomitant]
  5. HYDROMORPHONE HCL [Concomitant]
  6. WELLBUTRIN [Concomitant]

REACTIONS (3)
  - MUSCULAR WEAKNESS [None]
  - OEDEMA PERIPHERAL [None]
  - SWELLING FACE [None]
